FAERS Safety Report 8690988 (Version 2)
Quarter: 2013Q4

REPORT INFORMATION
  Report Type: Spontaneous
  Country: US (occurrence: US)
  Receive Date: 20120730
  Receipt Date: 20131107
  Transmission Date: 20140711
  Serious: Yes (Life-Threatening, Disabling, Other)
  Sender: FDA-Public Use
  Company Number: US-009507513-1207USA009920

PATIENT
  Age: 70 Year
  Sex: Female

DRUGS (1)
  1. ZOCOR [Suspect]
     Dosage: UNK, BID
     Route: 048

REACTIONS (7)
  - Hypoaesthesia [Unknown]
  - Muscle injury [Unknown]
  - Pain in extremity [Unknown]
  - Insomnia [Unknown]
  - Dyskinesia [Unknown]
  - Abasia [Unknown]
  - Arthralgia [Unknown]
